FAERS Safety Report 14479957 (Version 2)
Quarter: 2018Q2

REPORT INFORMATION
  Report Type: Report from Study
  Country: GB (occurrence: GB)
  Receive Date: 20180202
  Receipt Date: 20180601
  Transmission Date: 20180711
  Serious: Yes (Other)
  Sender: FDA-Public Use
  Company Number: GB-TEVA-2018-GB-852264

PATIENT
  Age: 65 Year
  Sex: Female
  Weight: 58.4 kg

DRUGS (18)
  1. FLUOROURACIL. [Suspect]
     Active Substance: FLUOROURACIL
     Indication: COLORECTAL CANCER
     Dosage: OVER 15 MIN; DAY 1 OF EACH 21 DAY CYCLE
     Route: 040
     Dates: start: 20150702
  2. BLINDED THERAPY [Suspect]
     Active Substance: INVESTIGATIONAL PRODUCT
     Indication: COLORECTAL CANCER
     Dosage: UNK, ON DAY 2 THROUGH TO 5 OF EACH 21 DAY CYCLE (2 IN 1 DAY)
     Route: 048
     Dates: start: 20150702
  3. DEXAMETHASONE. [Concomitant]
     Active Substance: DEXAMETHASONE
     Route: 048
     Dates: start: 20150813, end: 20150815
  4. CYCLIZINE [Concomitant]
     Active Substance: CYCLIZINE
     Indication: NAUSEA
     Dosage: 50 MG, UNK
     Route: 048
     Dates: start: 20150812
  5. DIORALYTE [Concomitant]
     Active Substance: CITRIC ACID MONOHYDRATE\DEXTROSE\POTASSIUM CATION\SODIUM CHLORIDE
     Dosage: 1 DF, QD
     Route: 048
     Dates: start: 20150501
  6. CODEINE PHOSPHATE [Concomitant]
     Active Substance: CODEINE PHOSPHATE
     Indication: STOMA CARE
     Dosage: 240 MILLIGRAM DAILY;
     Route: 048
     Dates: start: 20150501
  7. METOCLOPRAMIDE. [Concomitant]
     Active Substance: METOCLOPRAMIDE
     Indication: NAUSEA
     Dosage: 10 MG, UNK
     Route: 048
     Dates: start: 20150703
  8. GAVISCON [Concomitant]
     Active Substance: ALUMINUM HYDROXIDE\MAGNESIUM CARBONATE
     Indication: NAUSEA
     Route: 048
     Dates: start: 20150622
  9. LANSOPRAZOLE. [Concomitant]
     Active Substance: LANSOPRAZOLE
     Indication: GASTROOESOPHAGEAL REFLUX PROPHYLAXIS
     Dosage: 30 MILLIGRAM DAILY;
     Route: 048
     Dates: start: 20150501
  10. LEUCOVORIN. [Concomitant]
     Active Substance: LEUCOVORIN
     Indication: PRODUCT USED FOR UNKNOWN INDICATION
     Route: 065
  11. DIORALYTE [Concomitant]
     Active Substance: CITRIC ACID MONOHYDRATE\DEXTROSE\POTASSIUM CATION\SODIUM CHLORIDE
     Indication: STOMA CARE
     Dosage: 1 DOSAGE FORMS DAILY;
     Route: 048
     Dates: start: 20150501
  12. OXALIPLATIN. [Concomitant]
     Active Substance: OXALIPLATIN
     Indication: STOMA CARE
     Route: 065
  13. DEXAMETHASONE. [Concomitant]
     Active Substance: DEXAMETHASONE
     Indication: PROPHYLAXIS OF NAUSEA AND VOMITING
     Dosage: 8 MILLIGRAM DAILY;
     Route: 048
     Dates: start: 20150813, end: 20150815
  14. VELIPARIB [Suspect]
     Active Substance: VELIPARIB
     Indication: COLORECTAL CANCER
     Dosage: DAY 2 THROUGH 5 OF EACH 21 DAY CYCLE
     Route: 048
     Dates: start: 20150702
  15. LOPERAMIDE [Concomitant]
     Active Substance: LOPERAMIDE
     Indication: STOMA CARE
     Dosage: 8 MILLIGRAM DAILY;
     Route: 048
     Dates: start: 20150501
  16. IRINOTECAN [Suspect]
     Active Substance: IRINOTECAN
     Indication: COLORECTAL CANCER
     Dosage: DAY 1 OF EACH 14 DAY CYCLE
     Route: 042
     Dates: start: 20150702
  17. FLUOROURACIL. [Suspect]
     Active Substance: FLUOROURACIL
     Dosage: 2400 MG/M2, QW (OVER 46 HOURS; DAY 1 OF EACH 14 DAY CYCLE)
     Route: 042
     Dates: start: 20150702
  18. FOLINIC ACID [Concomitant]
     Active Substance: LEUCOVORIN
     Indication: COLORECTAL CANCER
     Route: 065
     Dates: start: 20150702, end: 20150812

REACTIONS (5)
  - Toxicity to various agents [Unknown]
  - Renal impairment [Unknown]
  - Hyponatraemia [Recovered/Resolved]
  - Blood creatinine increased [Recovered/Resolved]
  - Gastrointestinal stoma complication [Unknown]

NARRATIVE: CASE EVENT DATE: 20150825
